FAERS Safety Report 6826714-1 (Version None)
Quarter: 2010Q3

REPORT INFORMATION
  Report Type: 
  Country: None (occurrence: None)
  Receive Date: 20100709
  Receipt Date: 20100630
  Transmission Date: 20110219
  Serious: Yes (Death, Hospitalization)
  Sender: FDA-Public Use
  Company Number: GXKR2010DK07281

PATIENT
  Sex: Male
  Weight: 61 kg

DRUGS (8)
  1. HJERDYL (NGX) [Suspect]
     Indication: ANTICOAGULANT THERAPY
     Dosage: 75 MILLIGRAM(S)
     Route: 048
  2. MAREVAN [Interacting]
     Indication: ATRIAL FIBRILLATION
     Dosage: 2.5 MILLIGRAM(S)
     Route: 048
     Dates: end: 20091022
  3. CORODIL [Concomitant]
     Indication: HYPERTENSION
     Dosage: 10 MILLIGRAM(S)
     Route: 048
  4. CENTYL MED KALIUMKLORID [Concomitant]
     Indication: DIURETIC THERAPY
     Route: 048
  5. IMOCLONE [Concomitant]
     Dosage: 7.5 MILLIGRAM(S)
     Route: 048
  6. CITALOPRAM HYDROBROMIDE [Concomitant]
     Route: 048
  7. RISPERIDONE [Concomitant]
     Route: 048
  8. SERENASE [Concomitant]
     Route: 048

REACTIONS (3)
  - CEREBRAL HAEMORRHAGE [None]
  - DRUG INTERACTION [None]
  - INTERNATIONAL NORMALISED RATIO INCREASED [None]
